FAERS Safety Report 10291257 (Version 1)
Quarter: 2014Q3

REPORT INFORMATION
  Report Type: Spontaneous
  Country: US (occurrence: US)
  Receive Date: 20140710
  Receipt Date: 20140710
  Transmission Date: 20150326
  Serious: No
  Sender: FDA-Public Use
  Company Number: US-PURDUE-USA-2013-0105560

PATIENT
  Age: 41 Year
  Sex: Male

DRUGS (2)
  1. SILVADENE [Concomitant]
     Active Substance: SILVER SULFADIAZINE
     Indication: THERMAL BURN
     Dosage: UNK, PRN
     Route: 061
     Dates: start: 20130809
  2. BUTRANS [Suspect]
     Active Substance: BUPRENORPHINE
     Indication: BACK PAIN
     Dosage: 20 MCG/HR, WEEKLY
     Route: 062

REACTIONS (3)
  - Application site vesicles [Not Recovered/Not Resolved]
  - Product adhesion issue [Not Recovered/Not Resolved]
  - Application site burn [Not Recovered/Not Resolved]

NARRATIVE: CASE EVENT DATE: 20130809
